FAERS Safety Report 4840251-5 (Version None)
Quarter: 2005Q4

REPORT INFORMATION
  Report Type: 
  Country: None (occurrence: None)
  Receive Date: 20051129
  Receipt Date: 20051017
  Transmission Date: 20060501
  Serious: Yes (Hospitalization)
  Sender: FDA-Public Use
  Company Number: JP-MERCK-0510USA08450

PATIENT
  Age: 79 Year
  Sex: Male

DRUGS (5)
  1. PEPCID [Suspect]
     Indication: GASTRITIS
     Route: 048
     Dates: start: 20031212, end: 20040122
  2. PEPCID [Suspect]
     Route: 048
     Dates: start: 20040123, end: 20041217
  3. PEPCID [Suspect]
     Route: 048
     Dates: start: 20050628, end: 20050926
  4. LASIX [Concomitant]
     Indication: HYPERTENSION
     Route: 048
     Dates: start: 20041217, end: 20050926
  5. PEPCID RPD [Suspect]
     Route: 048
     Dates: start: 20050624, end: 20050627

REACTIONS (3)
  - HAEMARTHROSIS [None]
  - LOSS OF CONSCIOUSNESS [None]
  - PLATELET COUNT DECREASED [None]
